FAERS Safety Report 6156120-7 (Version None)
Quarter: 2009Q2

REPORT INFORMATION
  Report Type: 
  Country: None (occurrence: None)
  Receive Date: 20090413
  Receipt Date: 20090413
  Transmission Date: 20091009
  Serious: No
  Sender: FDA-Public Use
  Company Number: None

PATIENT
  Age: 68 Year
  Sex: Female
  Weight: 52.6173 kg

DRUGS (1)
  1. CRESTOR [Suspect]
     Indication: ARTERIOSCLEROSIS
     Dosage: TABS ONE EVERY DAY PO
     Route: 048
     Dates: start: 20080201, end: 20081207

REACTIONS (4)
  - BALANCE DISORDER [None]
  - GAIT DISTURBANCE [None]
  - MUSCULOSKELETAL STIFFNESS [None]
  - MYALGIA [None]
